FAERS Safety Report 6442332-1 (Version None)
Quarter: 2009Q4

REPORT INFORMATION
  Report Type: 
  Country: None (occurrence: None)
  Receive Date: 20091112
  Receipt Date: 20091030
  Transmission Date: 20100525
  Serious: Yes (Life-Threatening)
  Sender: FDA-Public Use
  Company Number: 2009AL007042

PATIENT
  Age: 92 Year
  Sex: Female

DRUGS (1)
  1. GABAPENTIN [Suspect]
     Indication: NEURALGIA
     Dosage: 300 MG;QD
     Dates: start: 20091020, end: 20091020

REACTIONS (2)
  - HYPERSENSITIVITY [None]
  - MUSCULOSKELETAL STIFFNESS [None]
